FAERS Safety Report 8333564-6 (Version None)
Quarter: 2012Q2

REPORT INFORMATION
  Report Type: 
  Country: None (occurrence: None)
  Receive Date: 20120503
  Receipt Date: 20120426
  Transmission Date: 20120825
  Serious: Yes (Other)
  Sender: FDA-Public Use
  Company Number: PHEH2012US008908

PATIENT
  Sex: Female

DRUGS (13)
  1. DIOVAN [Suspect]
     Indication: HYPERTENSION
     Dosage: 80 MG, UNK
  2. HYDROCHLOROTHIAZIDE [Concomitant]
     Indication: BLOOD PRESSURE
     Dosage: 25 MG, ONCE A DAY
     Route: 048
  3. DIOVAN [Suspect]
     Dosage: 160 MG, ONCE A DAY
     Route: 048
  4. VESICARE [Concomitant]
     Indication: HYPERTONIC BLADDER
     Dosage: 5 MG, ONCE A DAY
     Route: 048
  5. CHONDROITIN W/GLUCOSAMINE [Concomitant]
     Indication: ARTHROPATHY
     Dosage: (1200/1500 MG), THREE TIMES A DAY
  6. CALCIUM D TIME RELEASE [Concomitant]
     Indication: OSTEOPOROSIS
     Dosage: 2 DF (630/500 MG), ONCE
     Route: 048
  7. VITAMIN D [Concomitant]
     Indication: CARDIAC DISORDER
  8. PRAVASTATIN [Concomitant]
     Indication: BLOOD CHOLESTEROL
     Dosage: 20 MG, ONCE A DAY
     Route: 048
  9. FISH OIL [Concomitant]
     Indication: CARDIAC DISORDER
     Dosage: 1000 MG, QD
     Route: 048
  10. VITAMIN D [Concomitant]
     Indication: BONE DISORDER
     Dosage: 1000 MG, ONCE A DAY
     Route: 048
  11. ASPIRIN [Concomitant]
     Indication: BLOOD PRESSURE
     Dosage: 81 MG, ONCE A DAY
     Route: 048
  12. BIOTIN [Concomitant]
     Indication: ALOPECIA
     Dosage: 5000 UG, QD
  13. PRESERVISION /USA/ [Concomitant]
     Indication: VISUAL IMPAIRMENT
     Dosage: 5 MG, ONCE A DAY

REACTIONS (1)
  - CEREBROVASCULAR ACCIDENT [None]
